FAERS Safety Report 8554091-7 (Version None)
Quarter: 2012Q3

REPORT INFORMATION
  Report Type: 
  Country: None (occurrence: None)
  Receive Date: 20120731
  Receipt Date: 20120716
  Transmission Date: 20120928
  Serious: Yes (Other)
  Sender: FDA-Public Use
  Company Number: PHHY2012ES051809

PATIENT
  Age: 38 Year
  Sex: Female

DRUGS (7)
  1. DICLOFENAC SODIUM [Suspect]
     Indication: PAIN
     Dosage: 50 MG, BID (50 MG EVERY 12 HOURS)
     Route: 030
  2. DIPYRONE INJ [Concomitant]
     Indication: RENAL PAIN
     Route: 042
  3. METAMIZOL [Concomitant]
  4. SCOPOLAMINE [Concomitant]
     Indication: RENAL PAIN
     Route: 042
  5. MEPERIDINE HCL [Concomitant]
     Indication: RENAL PAIN
  6. DIAZEPAM [Concomitant]
  7. ACETAMINOPHEN [Concomitant]
     Indication: RENAL PAIN

REACTIONS (2)
  - OLIGOHYDRAMNIOS [None]
  - MATERNAL EXPOSURE DURING PREGNANCY [None]
